FAERS Safety Report 6050448-7 (Version None)
Quarter: 2009Q1

REPORT INFORMATION
  Report Type: 
  Country: None (occurrence: None)
  Receive Date: 20090122
  Receipt Date: 20090122
  Transmission Date: 20090719
  Serious: Yes (Hospitalization)
  Sender: FDA-Public Use
  Company Number: None

PATIENT
  Age: 83 Year
  Sex: Male
  Weight: 183 kg

DRUGS (1)
  1. CIPRO [Suspect]
     Indication: BRONCHIECTASIS
     Dosage: NOT AVAILABLE ONE DAILY PO
     Route: 048

REACTIONS (1)
  - TENDON DISORDER [None]
